FAERS Safety Report 6583780-9 (Version None)
Quarter: 2010Q1

REPORT INFORMATION
  Report Type: 
  Country: None (occurrence: None)
  Receive Date: 20100213
  Receipt Date: 20100213
  Transmission Date: 20100710
  Serious: Yes (Other)
  Sender: FDA-Public Use
  Company Number: None

PATIENT

DRUGS (1)
  1. CISATRACURIUM 20MG/ 10ML ABBOTT LABS [Suspect]
     Indication: ENDOTRACHEAL INTUBATION
     Dosage: 60MG ONCE IV BOLUS
     Route: 040
     Dates: start: 20100201, end: 20100201

REACTIONS (1)
  - DRUG INEFFECTIVE [None]
